FAERS Safety Report 8259553-8 (Version None)
Quarter: 2012Q2

REPORT INFORMATION
  Report Type: 
  Country: None (occurrence: None)
  Receive Date: 20120404
  Receipt Date: 20120402
  Transmission Date: 20120825
  Serious: Yes (Hospitalization, Disabling, Other)
  Sender: FDA-Public Use
  Company Number: US-MERCK-1105USA02747

PATIENT
  Age: 54 Year
  Sex: Female
  Weight: 42 kg

DRUGS (32)
  1. FOSAMAX PLUS D [Suspect]
     Indication: OSTEOPOROSIS
     Route: 048
     Dates: start: 20071201
  2. PROVERA [Concomitant]
     Route: 065
  3. VISTARIL [Concomitant]
     Route: 065
  4. SINGULAIR [Concomitant]
     Route: 048
  5. ELAVIL [Concomitant]
     Route: 048
  6. THEO-DUR [Concomitant]
     Route: 065
  7. ATIVAN [Concomitant]
     Route: 065
  8. FOSAMAX [Suspect]
     Route: 048
     Dates: start: 20111107
  9. FOSAMAX [Suspect]
     Indication: OSTEOPOROSIS
     Route: 048
     Dates: start: 19980101, end: 20070101
  10. FOSAMAX [Suspect]
     Indication: OSTEOPENIA
     Route: 048
     Dates: start: 19980101, end: 20070101
  11. FOSAMAX PLUS D [Suspect]
     Route: 048
     Dates: start: 20090101
  12. SENOKOT [Concomitant]
     Route: 065
  13. HORMONES (UNSPECIFIED) [Concomitant]
     Route: 065
     Dates: start: 19890101
  14. SPIRIVA [Concomitant]
     Route: 065
  15. DILANTIN [Concomitant]
     Route: 065
  16. POTASSIUM (UNSPECIFIED) [Concomitant]
     Route: 065
  17. ALENDRONATE SODIUM [Suspect]
     Indication: OSTEOPOROSIS
     Route: 048
     Dates: start: 20100501, end: 20110601
  18. ZOCOR [Concomitant]
     Route: 048
  19. ESTRATEST [Concomitant]
     Route: 065
  20. VICODIN [Concomitant]
     Route: 065
  21. POLY TUSSIN [Concomitant]
     Route: 065
  22. CALCIUM (UNSPECIFIED) [Concomitant]
     Route: 065
  23. COUMADIN [Concomitant]
     Route: 065
  24. ALUPENT [Concomitant]
     Route: 065
  25. PREDNISONE [Concomitant]
     Route: 065
  26. THEOPHYLLINE [Concomitant]
     Route: 065
  27. ALBUTEROL [Concomitant]
     Route: 065
  28. ADVAIR DISKUS 100/50 [Concomitant]
     Route: 065
  29. ALENDRONATE SODIUM [Suspect]
     Indication: OSTEOPENIA
     Route: 048
     Dates: start: 20100501, end: 20110601
  30. FOLIC ACID [Concomitant]
     Route: 065
  31. ZETIA [Concomitant]
     Route: 048
  32. MAGNESIUM (UNSPECIFIED) [Concomitant]
     Route: 065

REACTIONS (48)
  - CAROTID ARTERIOSCLEROSIS [None]
  - CONVULSION [None]
  - MENTAL STATUS CHANGES [None]
  - HYPOXIA [None]
  - SUBARACHNOID HAEMORRHAGE [None]
  - HYPERTENSION [None]
  - CELLULITIS [None]
  - CARDIAC MURMUR [None]
  - BRONCHITIS [None]
  - TACHYCARDIA [None]
  - NEPHROSCLEROSIS [None]
  - PELVIC PAIN [None]
  - CORONARY ARTERY EMBOLISM [None]
  - SUBCUTANEOUS ABSCESS [None]
  - INJURY [None]
  - HYPERPARATHYROIDISM [None]
  - CARDIAC DISORDER [None]
  - PNEUMOTHORAX [None]
  - RENAL FAILURE CHRONIC [None]
  - LOW TURNOVER OSTEOPATHY [None]
  - RESPIRATORY FAILURE [None]
  - PELVIC FRACTURE [None]
  - MUSCULAR WEAKNESS [None]
  - RUPTURED CEREBRAL ANEURYSM [None]
  - GRAND MAL CONVULSION [None]
  - DYSURIA [None]
  - GASTROINTESTINAL DISORDER [None]
  - BONE DISORDER [None]
  - AZOTAEMIA [None]
  - CHRONIC OBSTRUCTIVE PULMONARY DISEASE [None]
  - CHRONIC RESPIRATORY FAILURE [None]
  - HYPERLIPIDAEMIA [None]
  - HYPERCALCAEMIA [None]
  - FALL [None]
  - BLOOD CHOLESTEROL INCREASED [None]
  - TRANSIENT ISCHAEMIC ATTACK [None]
  - ARTHRALGIA [None]
  - ADVERSE DRUG REACTION [None]
  - HYPERCAPNIA [None]
  - SINUS DISORDER [None]
  - RENAL FAILURE ACUTE [None]
  - HYPOPHAGIA [None]
  - ECCHYMOSIS [None]
  - FEMUR FRACTURE [None]
  - HYPOMAGNESAEMIA [None]
  - DEPRESSION [None]
  - ASTHMA [None]
  - COUGH [None]
